FAERS Safety Report 24042910 (Version 12)
Quarter: 2025Q1

REPORT INFORMATION
  Report Type: Report from Study
  Country: MX (occurrence: MX)
  Receive Date: 20240702
  Receipt Date: 20250115
  Transmission Date: 20250409
  Serious: Yes (Hospitalization, Other)
  Sender: NOVARTIS
  Company Number: MX-002147023-NVSC2024MX136897

PATIENT
  Age: 52 Year
  Sex: Female
  Weight: 72.5 kg

DRUGS (19)
  1. KISQALI [Suspect]
     Active Substance: RIBOCICLIB
     Indication: Breast cancer
     Dosage: 2 DOSAGE FORM, QD (200 MG)
     Route: 048
     Dates: start: 202310
  2. KISQALI [Suspect]
     Active Substance: RIBOCICLIB
     Dosage: 600 MG (3X 200 MG), QD
     Route: 048
     Dates: start: 20231026, end: 20240630
  3. KISQALI [Suspect]
     Active Substance: RIBOCICLIB
     Dosage: 2 DOSAGE FORM, QD (2X200 MG)
     Route: 048
     Dates: start: 202402
  4. KISQALI [Suspect]
     Active Substance: RIBOCICLIB
     Dosage: 400 MG (2X200 MG), QD
     Route: 048
     Dates: start: 20240708
  5. KISQALI [Suspect]
     Active Substance: RIBOCICLIB
     Dosage: 600 MG (3X 200 MG), QD
     Route: 048
  6. KISQALI [Suspect]
     Active Substance: RIBOCICLIB
     Route: 048
  7. KISQALI [Suspect]
     Active Substance: RIBOCICLIB
     Dosage: 3 DOSAGE FORM (200 MG), QD (STARTED 10 MNTHS AGO)
     Route: 048
  8. KISQALI [Suspect]
     Active Substance: RIBOCICLIB
     Dosage: 2 DOSAGE FORM (200 MG), QD
     Route: 048
  9. KISQALI [Suspect]
     Active Substance: RIBOCICLIB
     Dosage: 2 DOSAGE FORM (2X200 MG), QD
     Route: 048
  10. KISQALI [Suspect]
     Active Substance: RIBOCICLIB
     Dosage: 2 DOSAGE FORM (2X200 MG), QD
     Route: 048
     Dates: start: 202402
  11. KISQALI [Suspect]
     Active Substance: RIBOCICLIB
     Dosage: 2 DOSAGE FORM, QD (200 MG)
     Route: 048
     Dates: end: 20250107
  12. LETROZOLE [Suspect]
     Active Substance: LETROZOLE
     Indication: Breast cancer
     Route: 065
     Dates: start: 2022
  13. LETROZOLE [Suspect]
     Active Substance: LETROZOLE
     Dosage: 1 DOSAGE FORM, QD
     Route: 048
     Dates: start: 202311
  14. LETROZOLE [Suspect]
     Active Substance: LETROZOLE
     Dosage: 1 DOSAGE FORM, QD (1 OF 2.5 MG)
     Route: 048
  15. ZOLEDRONIC ACID [Suspect]
     Active Substance: ZOLEDRONIC ACID
     Indication: Breast cancer
     Dosage: 1 DOSAGE FORM, QMO
     Route: 042
     Dates: start: 2021, end: 202310
  16. ZOLEDRONIC ACID [Suspect]
     Active Substance: ZOLEDRONIC ACID
     Indication: Bone disorder
     Dosage: 1 DOSAGE FORM, Q3MO
     Route: 042
     Dates: start: 202310
  17. ZOLEDRONIC ACID [Suspect]
     Active Substance: ZOLEDRONIC ACID
     Route: 065
  18. ACETAMINOPHEN [Concomitant]
     Active Substance: ACETAMINOPHEN
     Indication: Arthralgia
     Route: 048
  19. ACETAMINOPHEN [Concomitant]
     Active Substance: ACETAMINOPHEN
     Indication: Bone pain

REACTIONS (29)
  - Platelet count decreased [Unknown]
  - Anaemia [Unknown]
  - Metastases to bone [Not Recovered/Not Resolved]
  - Facial paralysis [Recovering/Resolving]
  - Hepatic neoplasm [Unknown]
  - Fatigue [Not Recovered/Not Resolved]
  - Alopecia [Recovering/Resolving]
  - Depression [Not Recovered/Not Resolved]
  - Decreased immune responsiveness [Recovering/Resolving]
  - Crying [Unknown]
  - Pain [Unknown]
  - Asthenia [Not Recovered/Not Resolved]
  - Pigmentation disorder [Not Recovered/Not Resolved]
  - Dandruff [Not Recovered/Not Resolved]
  - Dry skin [Not Recovered/Not Resolved]
  - Nausea [Recovering/Resolving]
  - Dizziness [Recovering/Resolving]
  - Bone pain [Recovering/Resolving]
  - Headache [Recovering/Resolving]
  - Arthralgia [Unknown]
  - Weight decreased [Recovered/Resolved]
  - Malaise [Recovering/Resolving]
  - Feeling abnormal [Recovering/Resolving]
  - Stress [Recovered/Resolved]
  - External ear pain [Unknown]
  - Dyspepsia [Unknown]
  - Poor quality sleep [Recovering/Resolving]
  - Abdominal discomfort [Recovered/Resolved]
  - Pain of skin [Recovering/Resolving]

NARRATIVE: CASE EVENT DATE: 20231101
